FAERS Safety Report 9171200 (Version 4)
Quarter: 2013Q2

REPORT INFORMATION
  Report Type: Spontaneous
  Country: US (occurrence: US)
  Receive Date: 20130319
  Receipt Date: 20130503
  Transmission Date: 20140414
  Serious: Yes (Other)
  Sender: FDA-Public Use
  Company Number: US-PFIZER INC-2013089106

PATIENT
  Age: 83 Year
  Sex: Male

DRUGS (4)
  1. ALAVERT [Suspect]
     Indication: SEASONAL ALLERGY
     Dosage: 1 EACH IN AM
     Dates: start: 20130310, end: 20130314
  2. CRESTOR [Concomitant]
     Dosage: 10MG, DAILY
     Route: 048
     Dates: start: 20110215
  3. VITAMIN D3 [Concomitant]
     Dosage: 2000 UNITS, DAILY
     Route: 048
     Dates: start: 20110215
  4. PLAVIX [Concomitant]
     Dosage: 75 MG, DAILY
     Route: 048
     Dates: start: 20110215

REACTIONS (4)
  - Cerebrovascular accident [Recovering/Resolving]
  - Transient ischaemic attack [Recovering/Resolving]
  - Neuropathy peripheral [Recovering/Resolving]
  - Hypertension [Recovering/Resolving]
